FAERS Safety Report 8905628 (Version 1)
Quarter: 2012Q4

REPORT INFORMATION
  Report Type: 
  Country: US (occurrence: US)
  Receive Date: 20121109
  Receipt Date: 20121109
  Transmission Date: 20130627
  Serious: Yes (Other)
  Sender: FDA-Public Use
  Company Number: PHHY2012US101931

PATIENT
  Age: 41 Year
  Sex: Female
  Weight: 109.5 kg

DRUGS (5)
  1. GILENYA [Suspect]
     Indication: MULTIPLE SCLEROSIS
     Dosage: 0.5 mg, UNK
     Route: 048
     Dates: start: 20101130, end: 20110513
  2. GILENYA [Suspect]
     Dosage: 0.5 mg, QD
     Route: 048
     Dates: start: 20120709, end: 20120709
  3. NUVIGIL [Concomitant]
     Indication: FATIGUE
     Dosage: 150 mg, QD
     Route: 048
     Dates: start: 20110302
  4. AMITIZA [Concomitant]
     Indication: IRRITABLE BOWEL SYNDROME
     Dosage: 24 mg, QD
     Route: 048
  5. CELEXA [Concomitant]
     Indication: DEPRESSION
     Dosage: 20 mg, QD
     Route: 048
     Dates: start: 20110110

REACTIONS (3)
  - Chest discomfort [Recovered/Resolved]
  - Electrocardiogram abnormal [Recovering/Resolving]
  - Bradycardia [Recovering/Resolving]
